FAERS Safety Report 18572689 (Version 2)
Quarter: 2021Q1

REPORT INFORMATION
  Report Type: Spontaneous
  Country: JP (occurrence: JP)
  Receive Date: 20201202
  Receipt Date: 20210302
  Transmission Date: 20210419
  Serious: Yes (Death, Hospitalization, Other)
  Sender: FDA-Public Use
  Company Number: JP-SAKK-2020SA344700AA

PATIENT
  Age: 67 Year
  Sex: Male

DRUGS (6)
  1. FLUOROURACIL. [Suspect]
     Active Substance: FLUOROURACIL
     Indication: OESOPHAGEAL CARCINOMA
     Route: 065
  2. DOCETAXEL. [Suspect]
     Active Substance: DOCETAXEL
     Indication: OESOPHAGEAL CARCINOMA
     Dosage: UNK
     Route: 065
  3. CISPLATIN. [Suspect]
     Active Substance: CISPLATIN
     Indication: OESOPHAGEAL CARCINOMA
     Route: 065
  4. FLUOROURACIL. [Suspect]
     Active Substance: FLUOROURACIL
     Indication: OESOPHAGEAL CARCINOMA
     Route: 065
  5. DOCETAXEL. [Suspect]
     Active Substance: DOCETAXEL
     Dosage: UNK
     Route: 065
  6. NEDAPLATIN [Suspect]
     Active Substance: NEDAPLATIN
     Indication: OESOPHAGEAL CARCINOMA
     Route: 065

REACTIONS (13)
  - Pericardial effusion [Fatal]
  - Bradycardia [Fatal]
  - Pericarditis constrictive [Fatal]
  - Post procedural hypotension [Fatal]
  - Cardio-respiratory arrest [Fatal]
  - Pericardial fibrosis [Fatal]
  - Pleural adhesion [Fatal]
  - Condition aggravated [Fatal]
  - Infectious pleural effusion [Unknown]
  - Pleural effusion [Unknown]
  - Cardiogenic shock [Fatal]
  - Pyrexia [Unknown]
  - Generalised oedema [Fatal]
